FAERS Safety Report 13708566 (Version 2)
Quarter: 2017Q3

REPORT INFORMATION
  Report Type: Spontaneous
  Country: US (occurrence: US)
  Receive Date: 20170630
  Receipt Date: 20170724
  Transmission Date: 20171127
  Serious: Yes (Other)
  Sender: FDA-Public Use
  Company Number: US-ALLERGAN-1727034US

PATIENT
  Age: 78 Year
  Sex: Female

DRUGS (5)
  1. FOSAMAX [Concomitant]
     Active Substance: ALENDRONATE SODIUM
     Indication: BONE DISORDER
     Dosage: UNK, Q WEEK
  2. SIMVASTATIN. [Concomitant]
     Active Substance: SIMVASTATIN
     Indication: BLOOD CHOLESTEROL INCREASED
     Dosage: UNK, QD
     Route: 048
  3. CLOBETASOL [Concomitant]
     Active Substance: CLOBETASOL
     Indication: ATROPHIC VULVOVAGINITIS
     Dosage: UNK, BI-WEEKLY
     Route: 061
  4. ESTRACE [Suspect]
     Active Substance: ESTRADIOL
     Indication: ATROPHIC VULVOVAGINITIS
     Dosage: 1 G, BI-WEEKLY
     Route: 067
     Dates: start: 2015
  5. METFORMIN [Concomitant]
     Active Substance: METFORMIN HYDROCHLORIDE
     Indication: DIABETES MELLITUS
     Dosage: UNK, BID
     Route: 048

REACTIONS (2)
  - Haematological malignancy [Not Recovered/Not Resolved]
  - Breast swelling [Not Recovered/Not Resolved]

NARRATIVE: CASE EVENT DATE: 201512
